FAERS Safety Report 5277359-9 (Version None)
Quarter: 2007Q1

REPORT INFORMATION
  Report Type: 
  Country: None (occurrence: None)
  Receive Date: 20070327
  Receipt Date: 20070319
  Transmission Date: 20070707
  Serious: Yes (Disabling)
  Sender: FDA-Public Use
  Company Number: 2007AC00500

PATIENT
  Age: 63 Year
  Sex: Male

DRUGS (2)
  1. BUPIVACAINE [Suspect]
     Indication: PAIN
     Route: 037
  2. HYDROMORPHONE HCL [Suspect]
     Indication: PAIN
     Route: 037

REACTIONS (1)
  - MYELOPATHY [None]
